FAERS Safety Report 8524124-2 (Version None)
Quarter: 2012Q2

REPORT INFORMATION
  Report Type: 
  Country: None (occurrence: None)
  Receive Date: 20120406
  Receipt Date: 20120109
  Transmission Date: 20120825
  Serious: Yes (Hospitalization)
  Sender: FDA-Public Use
  Company Number: US-CYPR-2011-000071

PATIENT
  Sex: Female
  Weight: 66.2252 kg

DRUGS (13)
  1. CLOPIDOGREL [Suspect]
     Indication: ANTIPLATELET THERAPY
     Dosage: 75 MG QD ORAL, 75 MG QD ORAL
     Route: 048
     Dates: start: 20110216, end: 20111102
  2. CLOPIDOGREL [Suspect]
     Indication: ANTIPLATELET THERAPY
     Dosage: 75 MG QD ORAL, 75 MG QD ORAL
     Route: 048
     Dates: start: 20111106
  3. ASPIRIN [Suspect]
     Indication: CORONARY ARTERY DISEASE
     Dosage: 81 MG QD ORAL
     Route: 048
     Dates: start: 20080211
  4. LISINOPRIL [Concomitant]
  5. LANTUS [Concomitant]
  6. IMDUR [Concomitant]
  7. LASIX [Concomitant]
  8. TOPROL-XL [Concomitant]
  9. NOVOLOG [Concomitant]
  10. PRAVACHOL [Concomitant]
  11. CYPHER STENT [Concomitant]
  12. ACTOS [Concomitant]
  13. COUMADIN [Concomitant]

REACTIONS (1)
  - OSTEOARTHRITIS [None]
